FAERS Safety Report 25557080 (Version 3)
Quarter: 2025Q3

REPORT INFORMATION
  Report Type: Spontaneous
  Country: EU (occurrence: EU)
  Receive Date: 20250715
  Receipt Date: 20250808
  Transmission Date: 20251021
  Serious: Yes (Death, Other)
  Sender: BOEHRINGER INGELHEIM
  Company Number: EU-BoehringerIngelheim-2025-BI-082557

PATIENT
  Age: 80 Year
  Sex: Male
  Weight: 52.20 kg

DRUGS (3)
  1. OFEV [Suspect]
     Active Substance: NINTEDANIB
     Indication: Idiopathic pulmonary fibrosis
  2. ALBUTEROL [Concomitant]
     Active Substance: ALBUTEROL
     Indication: Product used for unknown indication
     Dosage: 5MG/2,5 ML?1 SINGLE DOSE MORNING, NOON AND EVENING
  3. OXYGEN [Concomitant]
     Active Substance: OXYGEN
     Indication: Product used for unknown indication

REACTIONS (6)
  - Death [Fatal]
  - Idiopathic pulmonary fibrosis [Not Recovered/Not Resolved]
  - Diarrhoea [Unknown]
  - Nausea [Unknown]
  - Abdominal pain [Unknown]
  - Weight decreased [Unknown]

NARRATIVE: CASE EVENT DATE: 20250201
